FAERS Safety Report 19273437 (Version 1)
Quarter: 2021Q2

REPORT INFORMATION
  Report Type: Spontaneous
  Country: US (occurrence: US)
  Receive Date: 20210518
  Receipt Date: 20210518
  Transmission Date: 20210717
  Serious: Yes (Hospitalization)
  Sender: FDA-Public Use
  Company Number: None

PATIENT
  Age: 78 Year
  Sex: Female
  Weight: 48.5 kg

DRUGS (1)
  1. DULOXETINE. [Suspect]
     Active Substance: DULOXETINE
     Indication: DEPRESSION
     Dates: end: 20200130

REACTIONS (3)
  - Fatigue [None]
  - Inappropriate antidiuretic hormone secretion [None]
  - Therapy change [None]

NARRATIVE: CASE EVENT DATE: 20200130
